FAERS Safety Report 9801196 (Version 1)
Quarter: 2014Q1

REPORT INFORMATION
  Report Type: Spontaneous
  Country: FR (occurrence: FR)
  Receive Date: 20140107
  Receipt Date: 20140107
  Transmission Date: 20141002
  Serious: Yes (Life-Threatening, Other)
  Sender: FDA-Public Use
  Company Number: FR-ASTRAZENECA-2014SE00612

PATIENT
  Age: 20534 Day
  Sex: Male

DRUGS (9)
  1. CELOCURINE [Suspect]
     Route: 041
     Dates: start: 20131014, end: 20131014
  2. NAROPEINE [Suspect]
     Dates: start: 20131014, end: 20131014
  3. PROPOFOL [Suspect]
     Route: 041
     Dates: start: 20131014, end: 20131014
  4. SUFENTANIL [Suspect]
     Dates: start: 20131014, end: 20131014
  5. BISOPROLOL [Concomitant]
  6. COAPROVEL [Concomitant]
  7. AMLODIPINE [Concomitant]
  8. TRAMADOL [Concomitant]
  9. METFORMINE [Concomitant]

REACTIONS (1)
  - Anaphylactic shock [Not Recovered/Not Resolved]
